FAERS Safety Report 9974369 (Version 1)
Quarter: 2014Q1

REPORT INFORMATION
  Report Type: Report from Study
  Country: US (occurrence: US)
  Receive Date: 20140306
  Receipt Date: 20140306
  Transmission Date: 20141002
  Serious: No
  Sender: FDA-Public Use
  Company Number: US-ABBVIE-13P-163-1156264-00

PATIENT
  Sex: Female

DRUGS (2)
  1. HUMIRA [Suspect]
     Indication: RHEUMATOID ARTHRITIS
     Route: 058
     Dates: start: 20130806
  2. ANTI-BIOTICS [Concomitant]
     Indication: URINARY TRACT INFECTION

REACTIONS (2)
  - Drug dose omission [Unknown]
  - Urinary tract infection [Unknown]
